FAERS Safety Report 14458439 (Version 2)
Quarter: 2018Q1

REPORT INFORMATION
  Report Type: Spontaneous
  Country: ES (occurrence: ES)
  Receive Date: 20180130
  Receipt Date: 20180205
  Transmission Date: 20180509
  Serious: Yes (Death, Hospitalization)
  Sender: FDA-Public Use
  Company Number: ES-PFIZER INC-2018037582

PATIENT
  Age: 72 Year
  Sex: Female

DRUGS (2)
  1. BRINTELLIX [Suspect]
     Active Substance: VORTIOXETINE HYDROBROMIDE
     Indication: DEPRESSION
     Dosage: 5 MG, 1X/DAY (5MG ONCE A DAY)
     Route: 048
     Dates: start: 20160310, end: 20160402
  2. LUDIOMIL [Interacting]
     Active Substance: MAPROTILINE HYDROCHLORIDE
     Indication: DEPRESSION
     Dosage: 18.75 MG, EVERY 12 HOURS; (1/2-0-1/2)
     Route: 048
     Dates: start: 201404

REACTIONS (5)
  - Hyponatraemia [Fatal]
  - Cerebrovascular accident [Fatal]
  - Aspiration [Fatal]
  - Polydipsia [Fatal]
  - Drug interaction [Fatal]

NARRATIVE: CASE EVENT DATE: 201604
